FAERS Safety Report 14675578 (Version 1)
Quarter: 2018Q1

REPORT INFORMATION
  Report Type: Spontaneous
  Country: GB (occurrence: CZ)
  Receive Date: 20180323
  Receipt Date: 20180323
  Transmission Date: 20180509
  Serious: Yes (Death, Life-Threatening, Hospitalization, Disabling, Other)
  Sender: FDA-Public Use
  Company Number: CZ-FRESENIUS KABI-FK201803535

PATIENT
  Age: 66 Year
  Sex: Male
  Weight: 102 kg

DRUGS (3)
  1. OXALIPLATIN (MANUFACTURER UNKNOWN) [Suspect]
     Active Substance: OXALIPLATIN
     Indication: COLON CANCER
     Route: 017
     Dates: start: 20180216, end: 20180216
  2. FLUOROURACIL. [Suspect]
     Active Substance: FLUOROURACIL
     Indication: COLON CANCER
     Route: 017
     Dates: start: 20180216, end: 20180216
  3. VECTIBIX [Suspect]
     Active Substance: PANITUMUMAB
     Indication: COLON CANCER
     Route: 017
     Dates: start: 20180216, end: 20180216

REACTIONS (2)
  - Urinary tract infection [Fatal]
  - Sepsis [Fatal]

NARRATIVE: CASE EVENT DATE: 20180220
